FAERS Safety Report 10732538 (Version 3)
Quarter: 2015Q2

REPORT INFORMATION
  Report Type: Report from Study
  Country: BR (occurrence: BR)
  Receive Date: 20150123
  Receipt Date: 20150430
  Transmission Date: 20150821
  Serious: Yes (Other)
  Sender: FDA-Public Use
  Company Number: PHHY2014BR145708

PATIENT
  Sex: Female

DRUGS (10)
  1. DEPRILAN [Concomitant]
     Indication: ANEURYSM
     Dosage: 3 DF, QD
     Route: 065
  2. EXELON PATCH [Suspect]
     Active Substance: RIVASTIGMINE
     Indication: DEMENTIA ALZHEIMER^S TYPE
     Dosage: 9.5 MG (PATCH 10CM2), UNK
     Route: 062
  3. LYRICA [Concomitant]
     Active Substance: PREGABALIN
     Indication: DEPRESSION
  4. CYMBALTA [Concomitant]
     Active Substance: DULOXETINE HYDROCHLORIDE
     Indication: ANEURYSM
     Dosage: 1 DF, QD
     Route: 048
  5. PURAN [Concomitant]
     Active Substance: LEVOTHYROXINE SODIUM
     Indication: THYROID DISORDER
     Dosage: 1 DF, UNK (FASTING)
     Route: 065
  6. EXELON PATCH [Suspect]
     Active Substance: RIVASTIGMINE
     Dosage: 9.5 MG (PATCH 10CM2), Q12H
     Route: 062
     Dates: start: 201410
  7. LYRICA [Concomitant]
     Active Substance: PREGABALIN
     Indication: PAIN
     Dosage: 1 DF, BID (IN THE MORNING AND AT NIGHT)
     Route: 065
  8. DEPRILAN [Concomitant]
     Dosage: UNK
     Route: 065
  9. EXELON PATCH [Suspect]
     Active Substance: RIVASTIGMINE
     Dosage: 9.5 MG (PATCH 10CM2), QD
     Route: 062
  10. SINERGEN [Concomitant]
     Indication: HYPERTENSION
     Dosage: 1 DF, QD (IN THE MORNING)
     Route: 065

REACTIONS (10)
  - Application site hypersensitivity [Unknown]
  - Syncope [Not Recovered/Not Resolved]
  - Inappropriate schedule of drug administration [Unknown]
  - Apathy [Recovering/Resolving]
  - Weight decreased [Recovered/Resolved]
  - Concomitant disease aggravated [Not Recovered/Not Resolved]
  - Eating disorder [Recovering/Resolving]
  - Skin irritation [Recovering/Resolving]
  - Somnolence [Recovering/Resolving]
  - Oxygen saturation decreased [Recovering/Resolving]

NARRATIVE: CASE EVENT DATE: 2014
